FAERS Safety Report 5392106-8 (Version None)
Quarter: 2007Q3

REPORT INFORMATION
  Report Type: 
  Country: None (occurrence: None)
  Receive Date: 20070720
  Receipt Date: 20070712
  Transmission Date: 20080115
  Serious: Yes (Death)
  Sender: FDA-Public Use
  Company Number: JP-BRISTOL-MYERS SQUIBB COMPANY-13851050

PATIENT
  Age: 60 Year
  Sex: Female

DRUGS (4)
  1. ARIPIPRAZOLE [Suspect]
     Indication: SCHIZOPHRENIA
     Route: 048
     Dates: start: 20060701, end: 20070707
  2. FLUNITRAZEPAM [Concomitant]
     Route: 048
     Dates: end: 20070707
  3. CLONAZEPAM [Concomitant]
     Route: 048
     Dates: end: 20070707
  4. FUROSEMIDE [Concomitant]
     Indication: OEDEMA PERIPHERAL
     Route: 048
     Dates: end: 20070707

REACTIONS (1)
  - SUDDEN DEATH [None]
